FAERS Safety Report 15997862 (Version 1)
Quarter: 2019Q1

REPORT INFORMATION
  Report Type: Spontaneous
  Country: US (occurrence: US)
  Receive Date: 20190222
  Receipt Date: 20190222
  Transmission Date: 20190418
  Serious: Yes (Death)
  Sender: FDA-Public Use
  Company Number: US-FRESENIUS KABI-FK201901923

PATIENT
  Age: 77 Year
  Sex: Female

DRUGS (3)
  1. TRANEXAMIC ACID (MANUFACTURER UNKNOWN) [Suspect]
     Active Substance: TRANEXAMIC ACID
     Indication: HAEMORRHAGE INTRACRANIAL
     Dosage: UNKNOWN
     Route: 065
  2. FACTOR VIII INHIBITOR BYPASSING FRACTION [Suspect]
     Active Substance: ANTI-INHIBITOR COAGULANT COMPLEX
     Indication: HAEMORRHAGE INTRACRANIAL
     Dosage: 27 UNITS/KG
     Route: 065
  3. RIVAROXABAN [Concomitant]
     Active Substance: RIVAROXABAN
     Indication: ANTICOAGULANT THERAPY
     Route: 065

REACTIONS (3)
  - Condition aggravated [Fatal]
  - Product use in unapproved indication [Fatal]
  - Haemorrhage [Fatal]
